FAERS Safety Report 10935826 (Version 4)
Quarter: 2015Q3

REPORT INFORMATION
  Report Type: Report from Study
  Country: US (occurrence: US)
  Receive Date: 20150320
  Receipt Date: 20150724
  Transmission Date: 20151125
  Serious: Yes (Other)
  Sender: FDA-Public Use
  Company Number: US-PURDUE-USA-2015-0121843

PATIENT
  Age: 48 Year
  Sex: Male

DRUGS (2)
  1. OXYCONTIN [Suspect]
     Active Substance: OXYCODONE HYDROCHLORIDE
     Indication: INTERVERTEBRAL DISC DEGENERATION
     Dosage: 80 MG, TID
     Route: 048
     Dates: start: 20150416
  2. OXYCONTIN [Suspect]
     Active Substance: OXYCODONE HYDROCHLORIDE
     Dosage: 80 MG, TID
     Route: 048
     Dates: start: 20141210

REACTIONS (11)
  - Tooth infection [Unknown]
  - Intentional product use issue [Unknown]
  - Suicidal ideation [Unknown]
  - Bone formation increased [Unknown]
  - Mental impairment [Unknown]
  - Asthma [Not Recovered/Not Resolved]
  - Insomnia [Unknown]
  - Eating disorder [Unknown]
  - Bronchitis [Not Recovered/Not Resolved]
  - Stomatitis [Unknown]
  - Pain [Unknown]

NARRATIVE: CASE EVENT DATE: 20150424
